FAERS Safety Report 14615202 (Version 12)
Quarter: 2020Q2

REPORT INFORMATION
  Report Type: Report from Study
  Country: US (occurrence: US)
  Receive Date: 20180308
  Receipt Date: 20200511
  Transmission Date: 20200713
  Serious: Yes (Hospitalization)
  Sender: FDA-Public Use
  Company Number: US-ACTELION-A-US2017-161626

PATIENT
  Sex: Male
  Weight: 70.3 kg

DRUGS (7)
  1. WARFARIN [Concomitant]
     Active Substance: WARFARIN
  2. ADCIRCA [Concomitant]
     Active Substance: TADALAFIL
     Indication: PULMONARY ARTERIAL HYPERTENSION
  3. DIGOXIN. [Concomitant]
     Active Substance: DIGOXIN
  4. TRACLEER [Suspect]
     Active Substance: BOSENTAN
     Dosage: 125 MG, BID
     Route: 048
     Dates: start: 2011, end: 201912
  5. ALLOPURINOL. [Concomitant]
     Active Substance: ALLOPURINOL
     Indication: GOUT
  6. COUMADIN [Concomitant]
     Active Substance: WARFARIN SODIUM
  7. TRACLEER [Suspect]
     Active Substance: BOSENTAN
     Indication: PULMONARY ARTERIAL HYPERTENSION
     Dosage: 125 MG, BID
     Route: 048
     Dates: start: 201912

REACTIONS (32)
  - Nausea [Unknown]
  - Decreased appetite [Unknown]
  - Pharyngeal swelling [Unknown]
  - Blood alkaline phosphatase increased [Not Recovered/Not Resolved]
  - Chest pain [Unknown]
  - Gout [Unknown]
  - Mental impairment [Unknown]
  - Joint swelling [Unknown]
  - Weight decreased [Unknown]
  - Oropharyngeal pain [Unknown]
  - Oxygen saturation decreased [Unknown]
  - Respiratory distress [Unknown]
  - Dizziness [Unknown]
  - Viral infection [Unknown]
  - Pericardial effusion [Unknown]
  - Aspartate aminotransferase increased [Not Recovered/Not Resolved]
  - Hepatic enzyme increased [Unknown]
  - Enzyme level increased [Unknown]
  - Productive cough [Unknown]
  - Feeding disorder [Unknown]
  - Pulmonary oedema [Recovered/Resolved]
  - Pain in extremity [Unknown]
  - Fatigue [Unknown]
  - International normalised ratio increased [Unknown]
  - Liver function test increased [Not Recovered/Not Resolved]
  - Cough [Unknown]
  - Nasal congestion [Unknown]
  - Fluid retention [Unknown]
  - Pleural effusion [Unknown]
  - Loss of personal independence in daily activities [Unknown]
  - Pneumonia [Unknown]
  - Chest discomfort [Unknown]

NARRATIVE: CASE EVENT DATE: 2019
